FAERS Safety Report 9192384 (Version 1)
Quarter: 2013Q1

REPORT INFORMATION
  Report Type: Spontaneous
  Country: US (occurrence: US)
  Receive Date: 20130327
  Receipt Date: 20130327
  Transmission Date: 20140127
  Serious: Yes (Other)
  Sender: FDA-Public Use
  Company Number: US-BAYER-2013-037397

PATIENT
  Sex: Male

DRUGS (2)
  1. AVELOX [Suspect]
  2. AZITHROMYCIN [Suspect]

REACTIONS (1)
  - Stevens-Johnson syndrome [Recovered/Resolved]
